FAERS Safety Report 19521414 (Version 1)
Quarter: 2021Q3

REPORT INFORMATION
  Report Type: Spontaneous
  Country: FR (occurrence: FR)
  Receive Date: 20210712
  Receipt Date: 20210712
  Transmission Date: 20211014
  Serious: Yes (Hospitalization)
  Sender: FDA-Public Use
  Company Number: FR-TEVA-2021-FR-1931760

PATIENT
  Age: 60 Year
  Sex: Male
  Weight: 135 kg

DRUGS (13)
  1. ENOXAPARINE SODIQUE ((MAMMIFERE/PORC/MUQUEUSE INTESTINALE)) [Suspect]
     Active Substance: ENOXAPARIN SODIUM
     Indication: THROMBOSIS PROPHYLAXIS
     Dosage: 0.4ML
     Route: 058
     Dates: start: 20210512, end: 20210614
  2. KARDEGIC [Suspect]
     Active Substance: ASPIRIN DL-LYSINE
     Indication: MYOCARDIAL ISCHAEMIA
     Dosage: 75MG
     Route: 048
     Dates: start: 20210602, end: 20210613
  3. CEFEPIME [Suspect]
     Active Substance: CEFEPIME HYDROCHLORIDE
     Indication: DEVICE RELATED INFECTION
     Dosage: 2GM
     Route: 041
     Dates: start: 20210512, end: 20210517
  4. LANSOPRAZOLE. [Suspect]
     Active Substance: LANSOPRAZOLE
     Dosage: 15MG
     Route: 048
     Dates: start: 20210512, end: 20210609
  5. TEICOPLANINE [Suspect]
     Active Substance: TEICOPLANIN
     Dosage: 6MG/KG
     Route: 040
     Dates: start: 20210609, end: 20210615
  6. KARDEGIC [Suspect]
     Active Substance: ASPIRIN DL-LYSINE
     Dosage: 75MG
     Route: 048
     Dates: start: 20210622
  7. ENOXAPARINE SODIQUE ((MAMMIFERE/PORC/MUQUEUSE INTESTINALE)) [Suspect]
     Active Substance: ENOXAPARIN SODIUM
     Dosage: 0.6ML
     Route: 059
     Dates: start: 20210622
  8. DAPTOMYCINE [Suspect]
     Active Substance: DAPTOMYCIN
     Indication: DEVICE RELATED INFECTION
     Dosage: 1GM
     Route: 041
     Dates: start: 20210512, end: 20210601
  9. DAPTOMYCINE [Suspect]
     Active Substance: DAPTOMYCIN
     Dosage: 1GM
     Route: 041
     Dates: start: 20210615
  10. CLOPIDOGREL (CHLORHYDRATE DE) [Concomitant]
     Active Substance: CLOPIDOGREL HYDROCHLORIDE
     Indication: MYOCARDIAL ISCHAEMIA
     Dosage: 75MG
     Route: 048
     Dates: end: 2021
  11. PARACETAMOL [Suspect]
     Active Substance: ACETAMINOPHEN
     Indication: PAIN
     Route: 048
     Dates: start: 20210512, end: 20210614
  12. TEICOPLANINE [Suspect]
     Active Substance: TEICOPLANIN
     Indication: DEVICE RELATED INFECTION
     Dosage: 6MG/KG
     Route: 040
     Dates: start: 20210602, end: 20210609
  13. RIFAMPICINE [Suspect]
     Active Substance: RIFAMPIN
     Indication: DEVICE RELATED INFECTION
     Dosage: 600MG
     Route: 048
     Dates: start: 20210602, end: 20210615

REACTIONS (2)
  - Acute kidney injury [Not Recovered/Not Resolved]
  - Thrombocytopenia [Recovering/Resolving]

NARRATIVE: CASE EVENT DATE: 20210612
